FAERS Safety Report 24067816 (Version 1)
Quarter: 2024Q3

REPORT INFORMATION
  Report Type: Spontaneous
  Country: NO (occurrence: NO)
  Receive Date: 20240710
  Receipt Date: 20240710
  Transmission Date: 20241017
  Serious: Yes (Hospitalization)
  Sender: NOVO NORDISK
  Company Number: None

PATIENT
  Age: 43 Year
  Sex: Female

DRUGS (3)
  1. VIMOVO [Suspect]
     Active Substance: ESOMEPRAZOLE MAGNESIUM\NAPROXEN
     Indication: Back pain
     Dosage: 1 TABLET UP TO 2 TIMES DAILY
     Route: 048
     Dates: start: 20240410, end: 20240413
  2. MABTHERA [Suspect]
     Active Substance: RITUXIMAB
     Indication: Multiple sclerosis
     Dosage: 2500 MG
     Route: 042
     Dates: start: 20200624, end: 202311
  3. WEGOVY [Suspect]
     Active Substance: SEMAGLUTIDE
     Indication: Overweight
     Dosage: 2.4 MG
     Route: 058
     Dates: start: 20231213, end: 20240520

REACTIONS (12)
  - Colitis [Recovering/Resolving]
  - Pyrexia [Recovering/Resolving]
  - Iridocyclitis [Recovering/Resolving]
  - Diarrhoea [Recovering/Resolving]
  - Oesophageal candidiasis [Recovering/Resolving]
  - Faeces hard [Recovering/Resolving]
  - Inflammatory marker increased [Recovering/Resolving]
  - Skin ulcer [Recovering/Resolving]
  - Neutrophilic dermatosis [Recovering/Resolving]
  - Odynophagia [Recovering/Resolving]
  - Dehydration [Recovering/Resolving]
  - Back pain [Recovering/Resolving]

NARRATIVE: CASE EVENT DATE: 20231213
